FAERS Safety Report 23638478 (Version 1)
Quarter: 2024Q1

REPORT INFORMATION
  Report Type: Spontaneous
  Country: US (occurrence: US)
  Receive Date: 20240315
  Receipt Date: 20240315
  Transmission Date: 20240409
  Serious: No
  Sender: FDA-Public Use
  Company Number: US-GSK-US2024AMR031151

PATIENT
  Age: 75 Year
  Sex: Female

DRUGS (1)
  1. MOMELOTINIB [Suspect]
     Active Substance: MOMELOTINIB
     Indication: Product used for unknown indication
     Dosage: UNK

REACTIONS (3)
  - Splenomegaly [Unknown]
  - Rheumatic disorder [Unknown]
  - Product use in unapproved therapeutic environment [Unknown]
